FAERS Safety Report 8444469-4 (Version None)
Quarter: 2012Q2

REPORT INFORMATION
  Report Type: 
  Country: None (occurrence: None)
  Receive Date: 20120618
  Receipt Date: 20120613
  Transmission Date: 20120825
  Serious: Yes (Other)
  Sender: FDA-Public Use
  Company Number: BR-PFIZER INC-2012142496

PATIENT
  Age: 51 Year
  Sex: Female
  Weight: 79 kg

DRUGS (9)
  1. VARENICLINE TARTRATE [Suspect]
     Indication: SMOKING CESSATION THERAPY
     Dosage: UNK
     Route: 048
     Dates: start: 20120404, end: 20120101
  2. AMIODARONE HYDROCHLORIDE [Concomitant]
     Indication: CARDIAC DISORDER
     Dosage: UNK
  3. DIAZEPAM [Concomitant]
     Indication: RELAXATION THERAPY
     Dosage: UNK, SOMETIMES
  4. FOLIN [Concomitant]
     Indication: ALOPECIA
     Dosage: UNK
  5. LEVOTHYROXINE SODIUM [Concomitant]
     Indication: HYPOTHYROIDISM
     Dosage: UNK
  6. VARENICLINE TARTRATE [Suspect]
     Dosage: 1 MG, 2X/DAY
     Route: 048
     Dates: start: 20120101
  7. MARCUMAR [Concomitant]
     Indication: ANTICOAGULANT THERAPY
     Dosage: UNK
  8. CONCOR [Concomitant]
     Indication: CARDIAC DISORDER
     Dosage: UNK
  9. TETREX [Concomitant]
     Indication: RHEUMATOID ARTHRITIS
     Dosage: UNK

REACTIONS (5)
  - RESPIRATORY TRACT INFECTION [None]
  - ANXIETY [None]
  - FEAR [None]
  - INCREASED APPETITE [None]
  - WEIGHT INCREASED [None]
